FAERS Safety Report 7397506-2 (Version None)
Quarter: 2011Q2

REPORT INFORMATION
  Report Type: 
  Country: None (occurrence: None)
  Receive Date: 20110406
  Receipt Date: 20110323
  Transmission Date: 20111010
  Serious: Yes (Hospitalization, Other)
  Sender: FDA-Public Use
  Company Number: US-PFIZER INC-2011073119

PATIENT
  Age: 52 Year
  Sex: Female

DRUGS (3)
  1. ARIPIPRAZOLE [Suspect]
  2. TOPIRAMATE [Suspect]
  3. ALPRAZOLAM [Suspect]
     Dosage: UNK

REACTIONS (22)
  - HYPOKALAEMIA [None]
  - MEMORY IMPAIRMENT [None]
  - WEIGHT INCREASED [None]
  - AFFECT LABILITY [None]
  - PHYSICAL ASSAULT [None]
  - DRUG ABUSE [None]
  - CONFUSIONAL STATE [None]
  - IRRITABILITY [None]
  - PSYCHIATRIC DECOMPENSATION [None]
  - AGGRESSION [None]
  - INSOMNIA [None]
  - IMPAIRED SELF-CARE [None]
  - MANIA [None]
  - MOUTH ULCERATION [None]
  - GRANDIOSITY [None]
  - HOSTILITY [None]
  - PARANOIA [None]
  - DECREASED APPETITE [None]
  - VERBAL ABUSE [None]
  - OEDEMA PERIPHERAL [None]
  - TANGENTIALITY [None]
  - DYSPHONIA [None]
